FAERS Safety Report 19147805 (Version 4)
Quarter: 2021Q2

REPORT INFORMATION
  Report Type: Report from Study
  Country: None (occurrence: IL)
  Receive Date: 20210417
  Receipt Date: 20210613
  Transmission Date: 20210717
  Serious: Yes (Hospitalization, Other)
  Sender: FDA-Public Use
  Company Number: IL-ABBVIE-21K-082-3856304-00

PATIENT
  Age: 69 Year
  Sex: Male
  Weight: 74 kg

DRUGS (16)
  1. LAMIVUDINE. [Concomitant]
     Active Substance: LAMIVUDINE
     Indication: HEPATITIS B
     Dates: start: 2017
  2. DIPHENHYDRAMINE HCL [Concomitant]
     Active Substance: DIPHENHYDRAMINE HYDROCHLORIDE
     Indication: PREMEDICATION
     Dates: start: 20201027, end: 20201117
  3. VENETOCLAX. [Suspect]
     Active Substance: VENETOCLAX
     Indication: ACUTE MYELOID LEUKAEMIA
     Dosage: RAMP UP
     Route: 048
     Dates: start: 20201025, end: 20201025
  4. FOLIC ACID. [Concomitant]
     Active Substance: FOLIC ACID
     Indication: PROPHYLAXIS
     Dates: start: 20201106, end: 2020
  5. LORATADINE. [Concomitant]
     Active Substance: LORATADINE
     Indication: PREMEDICATION
     Dates: start: 2020, end: 20201201
  6. DECITABINE. [Suspect]
     Active Substance: DECITABINE
     Dosage: CYCLE 2
     Route: 042
     Dates: start: 20201122, end: 20201126
  7. ESOMEPRAZOLE. [Concomitant]
     Active Substance: ESOMEPRAZOLE MAGNESIUM
     Indication: PROPHYLAXIS
     Dates: start: 202004
  8. PARACETAMOL [Concomitant]
     Active Substance: ACETAMINOPHEN
     Indication: PREMEDICATION
     Dates: start: 20201026, end: 20201126
  9. ONDANSETRON HCL [Concomitant]
     Active Substance: ONDANSETRON HYDROCHLORIDE
     Indication: PREMEDICATION
     Dates: start: 20201026, end: 20201126
  10. HYDROCORTISONE. [Concomitant]
     Active Substance: HYDROCORTISONE
     Indication: PREMEDICATION
     Dates: start: 20201027, end: 20201201
  11. DECITABINE. [Suspect]
     Active Substance: DECITABINE
     Indication: ACUTE MYELOID LEUKAEMIA
     Dosage: CYCLE 1
     Route: 042
     Dates: start: 20201025, end: 20201029
  12. VENETOCLAX. [Suspect]
     Active Substance: VENETOCLAX
     Dosage: RAMP UP
     Route: 048
     Dates: start: 20201026, end: 20201026
  13. VENETOCLAX. [Suspect]
     Active Substance: VENETOCLAX
     Route: 048
     Dates: start: 20201027, end: 20201220
  14. METFORMIN [Concomitant]
     Active Substance: METFORMIN HYDROCHLORIDE
     Indication: DIABETES MELLITUS
     Dates: start: 2005
  15. TRANEXAMIC ACID. [Concomitant]
     Active Substance: TRANEXAMIC ACID
     Indication: RECTAL HAEMORRHAGE
     Dates: start: 202004
  16. ALLOPURINOL. [Concomitant]
     Active Substance: ALLOPURINOL
     Indication: PROPHYLAXIS
     Dates: start: 20201027, end: 20201105

REACTIONS (12)
  - Inflammatory pain [Recovered/Resolved]
  - Neutropenia [Recovered/Resolved]
  - Hypocalcaemia [Recovered/Resolved]
  - Hypomagnesaemia [Recovered/Resolved]
  - Disease progression [Unknown]
  - Odynophagia [Recovered/Resolved]
  - Klebsiella infection [Recovered/Resolved]
  - Hypophosphataemia [Recovered/Resolved]
  - Febrile neutropenia [Recovered/Resolved]
  - Constipation [Recovered/Resolved]
  - Asthenia [Recovered/Resolved]
  - Epistaxis [Recovered/Resolved]

NARRATIVE: CASE EVENT DATE: 20201101
